FAERS Safety Report 6757994-9 (Version None)
Quarter: 2010Q2

REPORT INFORMATION
  Report Type: 
  Country: None (occurrence: None)
  Receive Date: 20100607
  Receipt Date: 20100525
  Transmission Date: 20101027
  Serious: Yes (Other)
  Sender: FDA-Public Use
  Company Number: PHHY2010JP32851

PATIENT
  Age: 17 Year
  Sex: Female

DRUGS (1)
  1. GLEEVEC [Suspect]
     Indication: ACUTE LYMPHOCYTIC LEUKAEMIA
     Route: 048

REACTIONS (5)
  - BONE MARROW TRANSPLANT [None]
  - GENE MUTATION IDENTIFICATION TEST POSITIVE [None]
  - LEUKAEMIA RECURRENT [None]
  - THERAPY RESPONDER [None]
  - VOMITING [None]
